FAERS Safety Report 9304390 (Version 1)
Quarter: 2013Q2

REPORT INFORMATION
  Report Type: Spontaneous
  Country: BR (occurrence: BR)
  Receive Date: 20130522
  Receipt Date: 20130522
  Transmission Date: 20140414
  Serious: Yes (Life-Threatening, Hospitalization)
  Sender: FDA-Public Use
  Company Number: BR-B.I. PHARMACEUTICALS,INC./RIDGEFIELD-2013-BR-00576BR

PATIENT
  Age: 82 Year
  Sex: Female
  Weight: 45 kg

DRUGS (5)
  1. SPIRIVA RESPIMAT [Suspect]
     Indication: LUNG DISORDER
     Dosage: 5 MCG
     Route: 055
     Dates: start: 20130417, end: 20130502
  2. CITALOPRAM [Concomitant]
     Indication: DEPRESSION
     Dates: start: 2012
  3. SIMVASTATINE [Concomitant]
     Indication: BLOOD CHOLESTEROL INCREASED
  4. SYNTHROID [Concomitant]
     Indication: HYPOTHYROIDISM
  5. RANITIDINA [Concomitant]
     Indication: ABDOMINAL PAIN UPPER

REACTIONS (5)
  - Coma [Not Recovered/Not Resolved]
  - Central nervous system lesion [Not Recovered/Not Resolved]
  - Cardiomegaly [Not Recovered/Not Resolved]
  - Pneumonia [Not Recovered/Not Resolved]
  - Urinary tract infection [Not Recovered/Not Resolved]
